FAERS Safety Report 9254667 (Version 1)
Quarter: 2013Q2

REPORT INFORMATION
  Report Type: Spontaneous
  Country: GB (occurrence: None)
  Receive Date: 20130422
  Receipt Date: 20130422
  Transmission Date: 20140414
  Serious: Yes (Disabling, Other)
  Sender: FDA-Public Use
  Company Number: AUR-APL-2013-03181

PATIENT
  Age: 60 Year
  Sex: Female

DRUGS (4)
  1. CIPROFLOXACIN [Suspect]
     Indication: LOWER RESPIRATORY TRACT INFECTION
     Dates: start: 20120705, end: 20120718
  2. AMLODIPINE (AMLODIPINE) [Concomitant]
  3. LEVOTHYROXINE (LEVOTHYROXINE) [Concomitant]
  4. OMEPRAZOLE (OMEPRAZOLE) [Concomitant]

REACTIONS (7)
  - Alopecia [None]
  - Dizziness [None]
  - Tremor [None]
  - Vomiting [None]
  - Diarrhoea [None]
  - Urticaria [None]
  - Mouth ulceration [None]
